FAERS Safety Report 16768842 (Version 2)
Quarter: 2019Q4

REPORT INFORMATION
  Report Type: Spontaneous
  Country: US (occurrence: US)
  Receive Date: 20190903
  Receipt Date: 20191021
  Transmission Date: 20200122
  Serious: No
  Sender: FDA-Public Use
  Company Number: US-SA-2019SA239098

PATIENT
  Age: 16 Year
  Sex: Female

DRUGS (1)
  1. DUPIXENT [Suspect]
     Active Substance: DUPILUMAB
     Indication: DERMATITIS ATOPIC

REACTIONS (3)
  - Injection site rash [Unknown]
  - Device use error [Unknown]
  - Incorrect dose administered [Unknown]
